FAERS Safety Report 20140523 (Version 1)
Quarter: 2021Q4

REPORT INFORMATION
  Report Type: Spontaneous
  Country: US (occurrence: US)
  Receive Date: 20211202
  Receipt Date: 20211202
  Transmission Date: 20220303
  Serious: No
  Sender: FDA-Public Use
  Company Number: US-ELI_LILLY_AND_COMPANY-US202111011858

PATIENT
  Sex: Female

DRUGS (2)
  1. ETESEVIMAB [Suspect]
     Active Substance: ETESEVIMAB
     Indication: COVID-19 treatment
     Dosage: UNK, SINGLE
     Route: 065
     Dates: start: 20211122, end: 20211122
  2. BAMLANIVIMAB [Suspect]
     Active Substance: BAMLANIVIMAB
     Indication: COVID-19 treatment
     Dosage: UNK, SINGLE
     Route: 065
     Dates: start: 20211122, end: 20211122

REACTIONS (1)
  - Dyspepsia [Unknown]
